FAERS Safety Report 6945463-2 (Version None)
Quarter: 2010Q3

REPORT INFORMATION
  Report Type: 
  Country: None (occurrence: None)
  Receive Date: 20100827
  Receipt Date: 20100819
  Transmission Date: 20110219
  Serious: Yes (Other)
  Sender: FDA-Public Use
  Company Number: US-WYE-H17010110

PATIENT
  Sex: Female

DRUGS (4)
  1. ADVIL LIQUI-GELS [Suspect]
     Indication: ANALGESIC THERAPY
     Dosage: 2 GEL CAPLETS TWICE DAILY
     Route: 048
  2. ACETAMINOPHEN [Suspect]
     Indication: ANALGESIC THERAPY
     Dosage: UNKNOWN
     Route: 048
  3. OXYCODONE [Concomitant]
     Indication: ANALGESIC THERAPY
     Dosage: UNKNOWN
     Route: 048
  4. OXYCODONE HCL AND ACETAMINOPHEN [Suspect]
     Indication: ANALGESIC THERAPY
     Dosage: UNKNOWN
     Route: 048

REACTIONS (1)
  - OVARIAN CANCER [None]
